FAERS Safety Report 14187042 (Version 2)
Quarter: 2017Q4

REPORT INFORMATION
  Report Type: Spontaneous
  Country: US (occurrence: US)
  Receive Date: 20171114
  Receipt Date: 20171207
  Transmission Date: 20180321
  Serious: Yes (Other)
  Sender: FDA-Public Use
  Company Number: US-PFIZER INC-2017486997

PATIENT
  Age: 72 Year
  Sex: Female

DRUGS (2)
  1. IBRANCE [Suspect]
     Active Substance: PALBOCICLIB
     Dosage: UNK (125-,120-, ONE A DAY)
  2. IBRANCE [Suspect]
     Active Substance: PALBOCICLIB
     Dosage: 100 MG, UNK
     Dates: start: 20170623, end: 20171028

REACTIONS (5)
  - Drug hypersensitivity [Recovering/Resolving]
  - Sinus disorder [Recovering/Resolving]
  - Pneumonia [Recovering/Resolving]
  - Rash macular [Recovered/Resolved]
  - Nasopharyngitis [Recovering/Resolving]
